FAERS Safety Report 12130320 (Version 7)
Quarter: 2018Q4

REPORT INFORMATION
  Report Type: Spontaneous
  Country: US (occurrence: US)
  Receive Date: 20160301
  Receipt Date: 20181122
  Transmission Date: 20190204
  Serious: Yes (Other)
  Sender: FDA-Public Use
  Company Number: US-ROCHE-1718674

PATIENT
  Sex: Female

DRUGS (10)
  1. ACTEMRA [Suspect]
     Active Substance: TOCILIZUMAB
     Route: 058
     Dates: start: 20131220
  2. DULOXETINE. [Concomitant]
     Active Substance: DULOXETINE
  3. BUSPIRONE [Concomitant]
     Active Substance: BUSPIRONE HYDROCHLORIDE
  4. XANAX [Concomitant]
     Active Substance: ALPRAZOLAM
  5. VITAMIN A [Concomitant]
     Active Substance: VITAMIN A
  6. ACTEMRA [Suspect]
     Active Substance: TOCILIZUMAB
     Indication: RHEUMATOID ARTHRITIS
     Dosage: LAST DOSE PRIOR TO EVENT: 15/OCT/2015
     Route: 058
     Dates: start: 20131228
  7. LISINOPRIL. [Concomitant]
     Active Substance: LISINOPRIL
  8. VITAMIN E [Concomitant]
     Active Substance: .ALPHA.-TOCOPHEROL
  9. SOMA [Concomitant]
     Active Substance: CARISOPRODOL
  10. SUBOXONE [Concomitant]
     Active Substance: BUPRENORPHINE HYDROCHLORIDE\NALOXONE HYDROCHLORIDE

REACTIONS (4)
  - Blood pressure increased [Unknown]
  - Road traffic accident [Unknown]
  - Weight decreased [Unknown]
  - Influenza [Not Recovered/Not Resolved]
